FAERS Safety Report 8454329-0 (Version None)
Quarter: 2012Q2

REPORT INFORMATION
  Report Type: 
  Country: None (occurrence: None)
  Receive Date: 20120621
  Receipt Date: 20120314
  Transmission Date: 20120825
  Serious: No
  Sender: FDA-Public Use
  Company Number: US-ALLERGAN-1203640US

PATIENT
  Age: 84 Year
  Sex: Male

DRUGS (2)
  1. LUMIGAN [Suspect]
     Indication: GLAUCOMA
     Dosage: 1 DROP TO BOTH EYES, TWICE A DAY
     Route: 047
     Dates: start: 20110101
  2. ALPHAGAN P [Suspect]
     Indication: GLAUCOMA
     Dosage: 1 DROP TO BOTH EYES, TWICE A DAY
     Route: 047

REACTIONS (1)
  - VISION BLURRED [None]
